FAERS Safety Report 19618179 (Version 6)
Quarter: 2022Q1

REPORT INFORMATION
  Report Type: Report from Study
  Country: KR (occurrence: KR)
  Receive Date: 20210728
  Receipt Date: 20220302
  Transmission Date: 20220423
  Serious: Yes (Hospitalization)
  Sender: FDA-Public Use
  Company Number: KR-CELLTRION INC.-2021KR009883

PATIENT

DRUGS (80)
  1. HERZUMA [Suspect]
     Active Substance: TRASTUZUMAB-PKRB
     Indication: Bile duct cancer
     Dosage: 369 MG, CYCLE 1
     Route: 042
     Dates: start: 20210511
  2. HERZUMA [Suspect]
     Active Substance: TRASTUZUMAB-PKRB
     Dosage: CYCLE 2, 246MG(4MG*KG=4MG*61.5KG) EVERY 2 WEEKS
     Route: 042
     Dates: start: 20210525
  3. HERZUMA [Suspect]
     Active Substance: TRASTUZUMAB-PKRB
     Dosage: CYCLE 3, 246MG(4MG*KG=4MG*61.5KG) EVERY 2 WEEKS
     Route: 042
     Dates: start: 20210608
  4. HERZUMA [Suspect]
     Active Substance: TRASTUZUMAB-PKRB
     Dosage: CYCLE 4, 246MG(4MG*KG=4MG*61.5KG) EVERY 2 WEEKS
     Route: 042
     Dates: start: 20210622
  5. HERZUMA [Suspect]
     Active Substance: TRASTUZUMAB-PKRB
     Dosage: 246 MG, CYCLE 5 EVERY 2 WEEKS
     Route: 042
     Dates: start: 20210706
  6. HERZUMA [Suspect]
     Active Substance: TRASTUZUMAB-PKRB
     Dosage: CYCLE 6, 246MG(4MG*KG=4MG*61.5KG) EVERY 2 WEEKS
     Route: 042
     Dates: start: 20210721
  7. HERZUMA [Suspect]
     Active Substance: TRASTUZUMAB-PKRB
     Dosage: CYCLE 13, 246MG
     Route: 042
     Dates: start: 20211104
  8. HERZUMA [Suspect]
     Active Substance: TRASTUZUMAB-PKRB
     Dosage: 369 MG
     Route: 042
     Dates: start: 20211105
  9. HERZUMA [Suspect]
     Active Substance: TRASTUZUMAB-PKRB
     Dosage: 246 MG
     Route: 042
     Dates: start: 20220113
  10. HERZUMA [Suspect]
     Active Substance: TRASTUZUMAB-PKRB
     Dosage: 246 MG
     Route: 042
     Dates: start: 20220217
  11. OXALIPLATIN [Suspect]
     Active Substance: OXALIPLATIN
     Indication: Bile duct cancer
     Dosage: 140.2 MG (85MG/M2=85*1.65)+5%DW500ML
     Route: 042
     Dates: start: 20210511
  12. OXALIPLATIN [Suspect]
     Active Substance: OXALIPLATIN
     Dosage: 140.2 MG (85MG/M2=85*1.65)+5%DW500ML
     Route: 042
     Dates: start: 20210706
  13. OXALIPLATIN [Suspect]
     Active Substance: OXALIPLATIN
     Dosage: 107.2 MG
     Route: 042
     Dates: start: 20211104
  14. OXALIPLATIN [Suspect]
     Active Substance: OXALIPLATIN
     Dosage: 140.2 MG
     Route: 042
     Dates: start: 20211105
  15. OXALIPLATIN [Suspect]
     Active Substance: OXALIPLATIN
     Dosage: 107.2 MG
     Route: 042
     Dates: start: 20220113
  16. OXALIPLATIN [Suspect]
     Active Substance: OXALIPLATIN
     Dosage: 107.2 MG
     Route: 042
     Dates: start: 20220217
  17. FLUOROURACIL [Suspect]
     Active Substance: FLUOROURACIL
     Indication: Bile duct cancer
     Dosage: 660 MG (400MG/M2=400MG*1.65)+5%DW100ML
     Route: 040
     Dates: start: 20210511
  18. FLUOROURACIL [Suspect]
     Active Substance: FLUOROURACIL
     Dosage: 660 MG (400MG/M2=400MG*1.65)+5%DW100ML
     Route: 040
     Dates: start: 20210706
  19. FLUOROURACIL [Suspect]
     Active Substance: FLUOROURACIL
     Dosage: 660 MG
     Route: 042
     Dates: start: 20211105
  20. FLUOROURACIL [Suspect]
     Active Substance: FLUOROURACIL
     Indication: Bile duct cancer
     Dosage: 3960 MG (2400MG/M2=2400MG*1.65)+ 5%DW 1000ML
     Route: 042
     Dates: start: 20210511
  21. FLUOROURACIL [Suspect]
     Active Substance: FLUOROURACIL
     Dosage: 3960 MG (2400MG/M2=2400MG*1.65)+ 5%DW 1000ML
     Route: 042
     Dates: start: 20210706
  22. FLUOROURACIL [Suspect]
     Active Substance: FLUOROURACIL
     Dosage: 3135 MG
     Route: 042
     Dates: start: 20211104
  23. FLUOROURACIL [Suspect]
     Active Substance: FLUOROURACIL
     Dosage: 3960 MG
     Route: 042
     Dates: start: 20211105
  24. FLUOROURACIL [Suspect]
     Active Substance: FLUOROURACIL
     Dosage: 2475 MG
     Route: 042
     Dates: start: 20220113
  25. FLUOROURACIL [Suspect]
     Active Substance: FLUOROURACIL
     Dosage: 2475 MG
     Route: 042
     Dates: start: 20220217
  26. LEUCOVORIN CALCIUM [Suspect]
     Active Substance: LEUCOVORIN CALCIUM
     Indication: Bile duct cancer
     Dosage: 330 MG (200MG/M2=200*1.65) + 5%DW 100ML
     Route: 042
     Dates: start: 20210511
  27. LEUCOVORIN CALCIUM [Suspect]
     Active Substance: LEUCOVORIN CALCIUM
     Dosage: 330 MG (200MG/M2=200*1.65) + 5%DW 100ML
     Route: 042
     Dates: start: 20210706
  28. LEUCOVORIN CALCIUM [Suspect]
     Active Substance: LEUCOVORIN CALCIUM
     Dosage: 330 MG
     Route: 042
     Dates: start: 20211104
  29. LEUCOVORIN CALCIUM [Suspect]
     Active Substance: LEUCOVORIN CALCIUM
     Dosage: 330 MG
     Route: 042
     Dates: start: 20211105
  30. LEUCOVORIN CALCIUM [Suspect]
     Active Substance: LEUCOVORIN CALCIUM
     Dosage: 330 MG
     Route: 042
     Dates: start: 20220113
  31. LEUCOVORIN CALCIUM [Suspect]
     Active Substance: LEUCOVORIN CALCIUM
     Dosage: 330 MG
     Route: 042
     Dates: start: 20220217
  32. AMOSARTAN [Concomitant]
     Indication: Hypertension
     Dosage: 1 TAB, QD
     Route: 048
     Dates: start: 2020, end: 20210905
  33. ALOXI [Concomitant]
     Active Substance: PALONOSETRON HYDROCHLORIDE
     Indication: Prophylaxis
     Dosage: 1 VIAL, ONCE
     Route: 042
     Dates: start: 20210511, end: 20210511
  34. ALOXI [Concomitant]
     Active Substance: PALONOSETRON HYDROCHLORIDE
     Dosage: 1 VIAL, ONCE
     Route: 042
     Dates: start: 20210525, end: 20210525
  35. ALOXI [Concomitant]
     Active Substance: PALONOSETRON HYDROCHLORIDE
     Dosage: 1 VIAL, ONCE
     Route: 042
     Dates: start: 20210608, end: 20210608
  36. ALOXI [Concomitant]
     Active Substance: PALONOSETRON HYDROCHLORIDE
     Dosage: 1 VIAL, ONCE
     Route: 042
     Dates: start: 20210622, end: 20210622
  37. ALOXI [Concomitant]
     Active Substance: PALONOSETRON HYDROCHLORIDE
     Dosage: 1 VIAL, ONCE
     Route: 042
     Dates: start: 20210706, end: 20210706
  38. ALOXI [Concomitant]
     Active Substance: PALONOSETRON HYDROCHLORIDE
     Dosage: 1 VIAL, ONCE
     Route: 042
     Dates: start: 20210721, end: 20210721
  39. ALOXI [Concomitant]
     Active Substance: PALONOSETRON HYDROCHLORIDE
     Dosage: 1 VIAL, ONCE
     Route: 042
     Dates: start: 20210826, end: 20210826
  40. ALOXI [Concomitant]
     Active Substance: PALONOSETRON HYDROCHLORIDE
     Dosage: 1 VIAL, ONCE
     Route: 042
     Dates: start: 20210906, end: 20210906
  41. ALOXI [Concomitant]
     Active Substance: PALONOSETRON HYDROCHLORIDE
     Dosage: 1 VIAL, ONCE
     Route: 042
     Dates: start: 20210923, end: 20210923
  42. ALOXI [Concomitant]
     Active Substance: PALONOSETRON HYDROCHLORIDE
     Dosage: 1 VIAL, ONCE
     Route: 042
     Dates: start: 20211007, end: 20211007
  43. ALOXI [Concomitant]
     Active Substance: PALONOSETRON HYDROCHLORIDE
     Dosage: 1 VIAL, ONCE
     Route: 042
     Dates: start: 20211021, end: 20211021
  44. ALOXI [Concomitant]
     Active Substance: PALONOSETRON HYDROCHLORIDE
     Dosage: 1 VIAL, ONCE
     Route: 042
     Dates: start: 20211104, end: 20211104
  45. ALOXI [Concomitant]
     Active Substance: PALONOSETRON HYDROCHLORIDE
     Dosage: 1 VIAL, ONCE
     Route: 042
     Dates: start: 20211104, end: 20211104
  46. ALOXI [Concomitant]
     Active Substance: PALONOSETRON HYDROCHLORIDE
     Dosage: 1 VIAL, ONCE
     Route: 042
     Dates: start: 20210809, end: 20210809
  47. ALOXI [Concomitant]
     Active Substance: PALONOSETRON HYDROCHLORIDE
     Dosage: 1 VIAL, ONCE
     Route: 042
     Dates: start: 20211216, end: 20211216
  48. ALOXI [Concomitant]
     Active Substance: PALONOSETRON HYDROCHLORIDE
     Dosage: 1 VIAL, ONCE
     Route: 042
     Dates: start: 20211230, end: 20211230
  49. ALOXI [Concomitant]
     Active Substance: PALONOSETRON HYDROCHLORIDE
     Dosage: 1 VIAL, ONCE
     Route: 042
     Dates: start: 20220113, end: 20220113
  50. ALOXI [Concomitant]
     Active Substance: PALONOSETRON HYDROCHLORIDE
     Dosage: 1 VIAL, ONCE
     Route: 042
     Dates: start: 20211118, end: 20211118
  51. ALOXI [Concomitant]
     Active Substance: PALONOSETRON HYDROCHLORIDE
     Dosage: 1 VIAL, ONCE
     Route: 042
     Dates: start: 20211202, end: 20211202
  52. ALOXI [Concomitant]
     Active Substance: PALONOSETRON HYDROCHLORIDE
     Dosage: 1 VIAL, ONCE
     Route: 042
     Dates: start: 20220217, end: 20220217
  53. DEXAMETHASONE [Concomitant]
     Active Substance: DEXAMETHASONE
     Indication: Prophylaxis
     Dosage: 5 ML, ONCE
     Route: 042
     Dates: start: 20210511, end: 20210511
  54. DEXAMETHASONE [Concomitant]
     Active Substance: DEXAMETHASONE
     Dosage: 5 MG, ONCE
     Route: 042
     Dates: start: 20210525, end: 20210525
  55. DEXAMETHASONE [Concomitant]
     Active Substance: DEXAMETHASONE
     Dosage: 5 MG, ONCE
     Route: 042
     Dates: start: 20210608, end: 20210608
  56. DEXAMETHASONE [Concomitant]
     Active Substance: DEXAMETHASONE
     Dosage: 5 MG, ONCE
     Route: 042
     Dates: start: 20210622, end: 20210622
  57. DEXAMETHASONE [Concomitant]
     Active Substance: DEXAMETHASONE
     Dosage: 5 MG, ONCE
     Route: 042
     Dates: start: 20210706, end: 20210706
  58. DEXAMETHASONE [Concomitant]
     Active Substance: DEXAMETHASONE
     Dosage: 5 MG, ONCE
     Route: 042
     Dates: start: 20210721, end: 20210721
  59. DEXAMETHASONE [Concomitant]
     Active Substance: DEXAMETHASONE
     Dosage: 5 MG, ONCE
     Route: 042
     Dates: start: 20210809, end: 20210809
  60. DEXAMETHASONE [Concomitant]
     Active Substance: DEXAMETHASONE
     Dosage: 5 MG, ONCE
     Route: 042
     Dates: start: 20210826, end: 20210826
  61. DEXAMETHASONE [Concomitant]
     Active Substance: DEXAMETHASONE
     Dosage: 5 MG, ONCE
     Route: 042
     Dates: start: 20210906, end: 20210906
  62. DEXAMETHASONE [Concomitant]
     Active Substance: DEXAMETHASONE
     Dosage: 5 MG, ONCE
     Route: 042
     Dates: start: 20211007, end: 20211007
  63. DEXAMETHASONE [Concomitant]
     Active Substance: DEXAMETHASONE
     Dosage: 5 MG, ONCE
     Route: 042
     Dates: start: 20211021, end: 20211021
  64. DEXAMETHASONE [Concomitant]
     Active Substance: DEXAMETHASONE
     Dosage: 5 MG, ONCE
     Route: 042
     Dates: start: 20210923, end: 20210923
  65. DEXAMETHASONE [Concomitant]
     Active Substance: DEXAMETHASONE
     Dosage: 5 MG, ONCE
     Route: 042
     Dates: start: 20211104, end: 20211104
  66. DEXAMETHASONE [Concomitant]
     Active Substance: DEXAMETHASONE
     Dosage: 5 MG, ONCE
     Route: 042
     Dates: start: 20211118, end: 20211118
  67. DEXAMETHASONE [Concomitant]
     Active Substance: DEXAMETHASONE
     Dosage: 5 MG, ONCE
     Route: 042
     Dates: start: 20211216, end: 20211216
  68. DEXAMETHASONE [Concomitant]
     Active Substance: DEXAMETHASONE
     Dosage: 5 MG, ONCE
     Route: 042
     Dates: start: 20211230, end: 20211230
  69. DEXAMETHASONE [Concomitant]
     Active Substance: DEXAMETHASONE
     Dosage: 5 MG, ONCE
     Route: 042
     Dates: start: 20220113, end: 20220113
  70. DEXAMETHASONE [Concomitant]
     Active Substance: DEXAMETHASONE
     Dosage: 5 MG, ONCE
     Route: 042
     Dates: start: 20211202, end: 20211202
  71. DEXAMETHASONE [Concomitant]
     Active Substance: DEXAMETHASONE
     Dosage: 5 MG, ONCE
     Route: 042
     Dates: start: 20220217, end: 20220217
  72. BENZYDAMINE HYDROCHLORIDE [Concomitant]
     Active Substance: BENZYDAMINE HYDROCHLORIDE
     Indication: Prophylaxis
     Dosage: 1 BOTTLE, PRN
     Route: 048
     Dates: start: 20210527, end: 20210706
  73. BENZYDAMINE HYDROCHLORIDE [Concomitant]
     Active Substance: BENZYDAMINE HYDROCHLORIDE
     Dosage: 1 BOTTLE, PRN
     Route: 048
     Dates: start: 20211109
  74. BENZYDAMINE HYDROCHLORIDE [Concomitant]
     Active Substance: BENZYDAMINE HYDROCHLORIDE
     Dosage: 1 BOTTLE, PRN
     Route: 048
     Dates: start: 20211230
  75. MEGACE F [Concomitant]
     Indication: Decreased appetite
     Dosage: 1 PACK, QD
     Route: 048
     Dates: start: 20210803, end: 20211216
  76. AMLODIPINE CAMSYLATE [Concomitant]
     Active Substance: AMLODIPINE CAMSYLATE
     Indication: Hypertension
     Dosage: 1 TAB, QD
     Route: 048
     Dates: start: 20210906
  77. CALCIUM POLYSTYRENE SULFONATE [Concomitant]
     Active Substance: CALCIUM POLYSTYRENE SULFONATE
     Indication: Hyperkalaemia
     Dosage: 1 PACK, TID
     Route: 048
     Dates: start: 20211006, end: 20211006
  78. LYRICA [Concomitant]
     Active Substance: PREGABALIN
     Indication: Peripheral sensory neuropathy
     Dosage: 1 CAP, BID
     Route: 048
     Dates: start: 20211119
  79. FILGRASTIM [Concomitant]
     Active Substance: FILGRASTIM
     Indication: Neutrophil count decreased
     Dosage: 2 SYRG, ONCE
     Route: 042
     Dates: start: 20220216, end: 20220216
  80. GASTER [Concomitant]
     Active Substance: FAMOTIDINE
     Indication: Prophylaxis
     Dosage: 1 TAB, BID
     Route: 048
     Dates: start: 20220216

REACTIONS (6)
  - Diarrhoea [Recovered/Resolved]
  - Neutrophil count decreased [Recovered/Resolved]
  - Pyrexia [Recovered/Resolved]
  - Pyrexia [Recovered/Resolved]
  - Headache [Unknown]
  - Off label use [Unknown]

NARRATIVE: CASE EVENT DATE: 20210719
